FAERS Safety Report 6661570-6 (Version None)
Quarter: 2010Q1

REPORT INFORMATION
  Report Type: 
  Country: None (occurrence: None)
  Receive Date: 20100329
  Receipt Date: 20100318
  Transmission Date: 20100710
  Serious: Yes (Other)
  Sender: FDA-Public Use
  Company Number: 232638J10USA

PATIENT
  Age: 47 Year
  Sex: Female

DRUGS (3)
  1. REBIF [Suspect]
     Indication: MULTIPLE SCLEROSIS
     Dosage: 8/8 MCG, 3 IN 1 WEEKS, SUBCUTANEOUS
     Route: 058
     Dates: start: 20100304
  2. AMOXICILLIN [Concomitant]
  3. OMNICEF (CEFOTAXIME SODIUM) [Concomitant]

REACTIONS (14)
  - ABDOMINAL DISCOMFORT [None]
  - ANXIETY [None]
  - CHEST PAIN [None]
  - DIZZINESS [None]
  - EAR INFECTION [None]
  - HEADACHE [None]
  - INFLUENZA LIKE ILLNESS [None]
  - INSOMNIA [None]
  - OROPHARYNGEAL PAIN [None]
  - PAIN [None]
  - SINUSITIS [None]
  - THROAT TIGHTNESS [None]
  - TONSILLAR HYPERTROPHY [None]
  - VOMITING [None]
